FAERS Safety Report 25927105 (Version 2)
Quarter: 2025Q4

REPORT INFORMATION
  Report Type: Spontaneous
  Country: EG (occurrence: EG)
  Receive Date: 20251015
  Receipt Date: 20251104
  Transmission Date: 20260118
  Serious: Yes (Hospitalization)
  Sender: MERCK SHARP & DOHME LLC
  Company Number: EG-009507513-2337388

PATIENT
  Age: 53 Year
  Sex: Female

DRUGS (4)
  1. KEYTRUDA [Suspect]
     Active Substance: PEMBROLIZUMAB
     Indication: Triple negative breast cancer
     Dosage: STOP DATE AND ACTION TAKEN: N/A??START DATE: MAY OR JUN-2025
     Route: 042
     Dates: start: 2025, end: 2025
  2. KEYTRUDA [Suspect]
     Active Substance: PEMBROLIZUMAB
     Indication: Triple negative breast cancer
     Route: 042
     Dates: start: 20251008
  3. CARBOPLATIN [Suspect]
     Active Substance: CARBOPLATIN
     Indication: Triple negative breast cancer
     Dosage: STOP DATE : UNKNOWN?AND ACTION TAKEN: STOPPED?START DATE: MAY OR JUNE 2025?LOT/BATCH/SERIAL#/MODE...
     Route: 042
     Dates: start: 2025, end: 2025
  4. TAXOL [Suspect]
     Active Substance: PACLITAXEL
     Indication: Triple negative breast cancer
     Dosage: ACTION TAKEN: STOPPED?START DATE: MAY OR JUNE 2025?LOT/BATCH/SERIAL#/MODEL#/CATALOG#/UDI#: N/A
     Route: 042
     Dates: start: 2025, end: 20251001

REACTIONS (2)
  - Renal failure [Recovered/Resolved]
  - Gastrointestinal infection [Recovered/Resolved]

NARRATIVE: CASE EVENT DATE: 20250101
